FAERS Safety Report 5315131-1 (Version None)
Quarter: 2007Q2

REPORT INFORMATION
  Report Type: 
  Country: None (occurrence: None)
  Receive Date: 20070427
  Receipt Date: 20070417
  Transmission Date: 20071010
  Serious: Yes (Death, Hospitalization)
  Sender: FDA-Public Use
  Company Number: B0466097A

PATIENT
  Age: 19 Year
  Sex: Male

DRUGS (4)
  1. AMOXICILLIN + CLAVULANATE POTASSIUM [Suspect]
     Dosage: ORAL
     Route: 048
  2. AMOXICILLIN TRIHYDRATE [Suspect]
     Dosage: ORAL
     Route: 048
  3. COLCHICINE [Suspect]
     Dosage: ORAL
     Route: 048
  4. NSAIDS [Concomitant]
     Dosage: ORAL
     Route: 048

REACTIONS (9)
  - ABDOMINAL PAIN [None]
  - ACIDOSIS [None]
  - CARDIAC ARREST [None]
  - DEPRESSED LEVEL OF CONSCIOUSNESS [None]
  - DIARRHOEA [None]
  - HYPOTENSION [None]
  - MULTIPLE DRUG OVERDOSE [None]
  - RENAL FAILURE ACUTE [None]
  - VOMITING [None]
